FAERS Safety Report 13214953 (Version 1)
Quarter: 2017Q1

REPORT INFORMATION
  Report Type: Spontaneous
  Country: US (occurrence: US)
  Receive Date: 20170209
  Receipt Date: 20170209
  Transmission Date: 20170428
  Serious: No
  Sender: FDA-Public Use
  Company Number: US-ALLERGAN-1680856US

PATIENT
  Age: 44 Year
  Sex: Female

DRUGS (3)
  1. BOTOX COSMETIC [Suspect]
     Active Substance: ONABOTULINUMTOXINA
     Indication: SKIN WRINKLING
     Dosage: 40 UNITS, SINGLE
     Route: 030
     Dates: start: 20160224, end: 20160224
  2. BOTOX COSMETIC [Suspect]
     Active Substance: ONABOTULINUMTOXINA
     Indication: SKIN WRINKLING
  3. BOTOX COSMETIC [Suspect]
     Active Substance: ONABOTULINUMTOXINA
     Indication: SKIN WRINKLING

REACTIONS (11)
  - Muscle tightness [Recovering/Resolving]
  - Nervous system disorder [Recovering/Resolving]
  - Musculoskeletal discomfort [Recovering/Resolving]
  - Mood swings [Unknown]
  - Insomnia [Unknown]
  - Dizziness [Recovering/Resolving]
  - Vision blurred [Unknown]
  - Headache [Recovering/Resolving]
  - Palpitations [Unknown]
  - Anxiety [Unknown]
  - Weight decreased [Unknown]
